FAERS Safety Report 9408387 (Version 1)
Quarter: 2013Q3

REPORT INFORMATION
  Report Type: Spontaneous
  Country: PT (occurrence: None)
  Receive Date: 20130716
  Receipt Date: 20130716
  Transmission Date: 20140515
  Serious: Yes (Other)
  Sender: FDA-Public Use
  Company Number: 2013P1011316

PATIENT
  Age: 73 Year
  Sex: Male

DRUGS (5)
  1. DIGOXIN [Suspect]
  2. PREDNISOLONE [Concomitant]
  3. AMINOPHYLLINE [Concomitant]
  4. UNSPECIFIED BROADSPECTRUM [Concomitant]
  5. ANTIBIOTIC [Concomitant]

REACTIONS (8)
  - Psychomotor hyperactivity [None]
  - Hypotension [None]
  - Electrocardiogram QRS complex prolonged [None]
  - Ventricular tachycardia [None]
  - Oliguria [None]
  - Leukocytosis [None]
  - Hyperthyroidism [None]
  - Toxicity to various agents [None]
